FAERS Safety Report 22890128 (Version 2)
Quarter: 2024Q1

REPORT INFORMATION
  Report Type: Spontaneous
  Country: US (occurrence: US)
  Receive Date: 20230831
  Receipt Date: 20240203
  Transmission Date: 20240409
  Serious: No
  Sender: FDA-Public Use
  Company Number: US-Ipsen Biopharmaceuticals, Inc.-2023-16747

PATIENT
  Age: 30 Year
  Sex: Male
  Weight: 88.9 kg

DRUGS (14)
  1. TAZVERIK [Suspect]
     Active Substance: TAZEMETOSTAT HYDROBROMIDE
     Indication: Soft tissue sarcoma
     Dosage: 800 MG, TWICE DAILY
     Route: 048
     Dates: start: 20210810
  2. ACETAMINOPHEN [Concomitant]
     Active Substance: ACETAMINOPHEN
  3. DEXAMETHASONE [Concomitant]
     Active Substance: DEXAMETHASONE
  4. DOCUSATE SODIUM [Concomitant]
     Active Substance: DOCUSATE SODIUM
  5. LIDOCAINE VISCOUS HCl [Concomitant]
  6. LORAZEPAM [Concomitant]
     Active Substance: LORAZEPAM
  7. MESNA [Concomitant]
     Active Substance: MESNA
  8. MIRTAZAPINE [Concomitant]
     Active Substance: MIRTAZAPINE
  9. NYSTATIN [Concomitant]
     Active Substance: NYSTATIN
  10. OLANZAPINE [Concomitant]
     Active Substance: OLANZAPINE
  11. OXYCODONE HYDROCHLORIDE [Concomitant]
     Active Substance: OXYCODONE HYDROCHLORIDE
  12. METHOCARBAMOL [Concomitant]
     Active Substance: METHOCARBAMOL
  13. PROCHLORPERAZINE MALEATE [Concomitant]
     Active Substance: PROCHLORPERAZINE MALEATE
  14. IBUPROFEN [Concomitant]
     Active Substance: IBUPROFEN

REACTIONS (2)
  - Fatigue [Unknown]
  - Product dose omission issue [Unknown]
